FAERS Safety Report 4522226-9 (Version None)
Quarter: 2004Q4

REPORT INFORMATION
  Report Type: 
  Country: None (occurrence: None)
  Receive Date: 20041207
  Receipt Date: 20041122
  Transmission Date: 20050328
  Serious: Yes (Other)
  Sender: FDA-Public Use
  Company Number: FR_041105267

PATIENT
  Age: 76 Year
  Sex: Female

DRUGS (5)
  1. ORSTEO(TERIPARATIDE) [Suspect]
     Indication: OSTEOPOROSIS
     Dosage: 20 UG/1 DAY
     Dates: start: 20041108, end: 20041121
  2. PROPRANOLOL [Concomitant]
  3. FENOFIBRATE [Concomitant]
  4. VASTAREL(TRIMETAZIDINE HYDROCHLORIDE) [Concomitant]
  5. INIPOMP(PANTOPRAZOLE) [Concomitant]

REACTIONS (2)
  - CHEST PAIN [None]
  - MUSCLE CRAMP [None]
